FAERS Safety Report 9781856 (Version 1)
Quarter: 2013Q4

REPORT INFORMATION
  Report Type: Report from Study
  Country: US (occurrence: US)
  Receive Date: 20131225
  Receipt Date: 20131225
  Transmission Date: 20140711
  Serious: Yes (Other)
  Sender: FDA-Public Use
  Company Number: US-ROCHE-1324742

PATIENT
  Age: 76 Year
  Sex: Male

DRUGS (1)
  1. LUCENTIS [Suspect]
     Indication: MACULAR DEGENERATION
     Dosage: FOR THE LAST 3-4 YEARS
     Route: 065

REACTIONS (3)
  - Road traffic accident [Unknown]
  - Retinal detachment [Recovered/Resolved]
  - Blindness unilateral [Unknown]
